FAERS Safety Report 8777828 (Version 1)
Quarter: 2012Q4

REPORT INFORMATION
  Report Type: 
  Country: AR (occurrence: AR)
  Receive Date: 20120911
  Receipt Date: 20120911
  Transmission Date: 20130627
  Serious: Yes (Hospitalization)
  Sender: FDA-Public Use
  Company Number: PHHY2012AR077623

PATIENT
  Sex: Female

DRUGS (2)
  1. EXELON PATCH [Suspect]
     Indication: COGNITIVE DISORDER
     Dosage: 10 cm at a dose of one patch daily
     Route: 062
     Dates: end: 201205
  2. EXELON PATCH [Suspect]
     Route: 062
     Dates: start: 20120906

REACTIONS (2)
  - Breast cancer [Recovered/Resolved]
  - Memory impairment [Not Recovered/Not Resolved]
